FAERS Safety Report 18851878 (Version 1)
Quarter: 2021Q1

REPORT INFORMATION
  Report Type: Spontaneous
  Country: AU (occurrence: AU)
  Receive Date: 20210205
  Receipt Date: 20210205
  Transmission Date: 20210420
  Serious: Yes (Other)
  Sender: FDA-Public Use
  Company Number: AU-GLAXOSMITHKLINE-AUCH2021APC002328

PATIENT
  Age: 36 Year
  Sex: Female

DRUGS (1)
  1. IBUPROFEN. [Suspect]
     Active Substance: IBUPROFEN
     Indication: PRODUCT USED FOR UNKNOWN INDICATION
     Dosage: UNK

REACTIONS (7)
  - Hypoalbuminaemia [Unknown]
  - Drug abuse [Unknown]
  - Malnutrition [Unknown]
  - Iron deficiency anaemia [Unknown]
  - Intestinal obstruction [Unknown]
  - Gastrointestinal disorder [Unknown]
  - Oedema peripheral [Unknown]
